FAERS Safety Report 7648516-9 (Version None)
Quarter: 2011Q3

REPORT INFORMATION
  Report Type: 
  Country: None (occurrence: None)
  Receive Date: 20110801
  Receipt Date: 20110727
  Transmission Date: 20111222
  Serious: Yes (Hospitalization, Other)
  Sender: FDA-Public Use
  Company Number: US-PFIZER INC-2011087692

PATIENT
  Sex: Male

DRUGS (10)
  1. CHANTIX [Suspect]
     Indication: SMOKING CESSATION THERAPY
     Dosage: STARTER PACK
     Route: 048
     Dates: start: 20070801, end: 20070901
  2. CHANTIX [Suspect]
     Dosage: STARTER PACK AND 1 MG CONTINUING PACKS
     Route: 048
     Dates: start: 20090801, end: 20091201
  3. AMPHETAMINE SULFATE [Concomitant]
     Indication: ATTENTION DEFICIT/HYPERACTIVITY DISORDER
     Dosage: UNK
     Dates: start: 20010101, end: 20090101
  4. LITHIUM [Concomitant]
     Indication: BIPOLAR DISORDER
     Dosage: UNK
     Dates: start: 20010101, end: 20090101
  5. CHANTIX [Suspect]
     Dosage: STARTER PACK
     Route: 048
     Dates: start: 20081101, end: 20090601
  6. CHANTIX [Suspect]
     Dosage: 1 MG CONTINUING PACKS
     Route: 048
     Dates: start: 20080101, end: 20080601
  7. LITHIUM [Concomitant]
     Indication: PERSONALITY DISORDER
  8. LITHIUM [Concomitant]
     Indication: PSYCHOTIC DISORDER
  9. LITHIUM [Concomitant]
     Indication: SUICIDAL IDEATION
  10. LITHIUM [Concomitant]
     Indication: AGGRESSION

REACTIONS (14)
  - INTENTIONAL OVERDOSE [None]
  - PERSONALITY DISORDER [None]
  - ALCOHOLISM [None]
  - LOSS OF CONSCIOUSNESS [None]
  - AGGRESSION [None]
  - SUICIDE ATTEMPT [None]
  - BIPOLAR DISORDER [None]
  - DEPRESSION [None]
  - DRUG ABUSE [None]
  - HOMICIDAL IDEATION [None]
  - INSOMNIA [None]
  - PSYCHOTIC DISORDER [None]
  - ANXIETY [None]
  - SUICIDAL IDEATION [None]
